FAERS Safety Report 7756969-0 (Version None)
Quarter: 2011Q3

REPORT INFORMATION
  Report Type: 
  Country: None (occurrence: None)
  Receive Date: 20110916
  Receipt Date: 20110916
  Transmission Date: 20111222
  Serious: Yes (Life-Threatening, Hospitalization, Other)
  Sender: FDA-Public Use
  Company Number: None

PATIENT
  Age: 29 Year
  Sex: Female
  Weight: 52.163 kg

DRUGS (1)
  1. SAPHRIS [Suspect]
     Indication: DEPRESSION
     Dates: start: 20100620, end: 20100627

REACTIONS (6)
  - LACERATION [None]
  - SUICIDE ATTEMPT [None]
  - DEPRESSION [None]
  - DYSKINESIA [None]
  - CONDITION AGGRAVATED [None]
  - FORMICATION [None]
